FAERS Safety Report 9386083 (Version 1)
Quarter: 2013Q3

REPORT INFORMATION
  Report Type: Spontaneous
  Country: BR (occurrence: BR)
  Receive Date: 20130706
  Receipt Date: 20130706
  Transmission Date: 20140515
  Serious: Yes (Hospitalization, Disabling)
  Sender: FDA-Public Use
  Company Number: BR-B.I. PHARMACEUTICALS,INC./RIDGEFIELD-2013-BR-00787BR

PATIENT
  Age: 67 Year
  Sex: Female
  Weight: 56.8 kg

DRUGS (17)
  1. SPIRIVA [Suspect]
     Indication: ASTHMA
     Dosage: 18 MCG
     Route: 055
     Dates: start: 2009
  2. SPIRIVA [Suspect]
     Indication: DYSPNOEA
     Dosage: 5 MCG
     Route: 055
     Dates: start: 2010
  3. SPIRIVA [Suspect]
     Indication: CHRONIC OBSTRUCTIVE PULMONARY DISEASE
  4. PREDNISONE [Concomitant]
     Dosage: 10 MG
  5. BAMIFILINA [Concomitant]
     Dosage: 1200 MG
     Dates: end: 2009
  6. MONTELUKAST [Concomitant]
     Dosage: 10 MG
     Dates: end: 2009
  7. PANTOPRAZOLE [Concomitant]
     Dosage: 40 MG
  8. VALSARTANA [Concomitant]
     Dosage: 80 MG
  9. LEVOTIROXINA [Concomitant]
     Dosage: 75 MCG
  10. CLONAZEPAN [Concomitant]
     Dosage: 4 MG
  11. FLUOXETINA [Concomitant]
     Dosage: 60 MG
  12. IMMUNOTHERAPY + ORTHOMOLECULAR MEDICATIONS [Concomitant]
     Dates: end: 2009
  13. SALMETEROL + FLUTICASONE [Concomitant]
     Dosage: 50/500MCG
  14. FLUTICASONE [Concomitant]
     Dosage: 500 MCG
     Dates: end: 2009
  15. ROFLUMILAST [Concomitant]
     Dates: start: 2010
  16. ACETILCISTEINA [Concomitant]
     Dosage: 600 MG
     Dates: start: 2009
  17. AZITHROMYCIN [Concomitant]
     Dosage: 1500 MG
     Dates: start: 2011

REACTIONS (8)
  - Lung infection [Recovered/Resolved]
  - Lung infection [Recovered/Resolved]
  - Fall [Recovered/Resolved]
  - Femur fracture [Recovered/Resolved]
  - Wrist fracture [Recovered/Resolved]
  - Intestinal obstruction [Recovered/Resolved]
  - Weight decreased [Recovered/Resolved]
  - Pneumonia [Recovered/Resolved]
